FAERS Safety Report 22363037 (Version 2)
Quarter: 2024Q2

REPORT INFORMATION
  Report Type: Spontaneous
  Country: US (occurrence: US)
  Receive Date: 20230525
  Receipt Date: 20240510
  Transmission Date: 20240717
  Serious: No
  Sender: FDA-Public Use
  Company Number: US-UCBSA-2022036153

PATIENT
  Age: 49 Year
  Sex: Female

DRUGS (1)
  1. CIMZIA [Suspect]
     Active Substance: CERTOLIZUMAB PEGOL
     Indication: Rheumatoid arthritis
     Dosage: 200 MILLIGRAM, EV 2 WEEKS(QOW)
     Route: 058
     Dates: start: 202107

REACTIONS (6)
  - COVID-19 [Not Recovered/Not Resolved]
  - Headache [Unknown]
  - Oropharyngeal pain [Unknown]
  - Fungal infection [Not Recovered/Not Resolved]
  - Gastrointestinal disorder [Unknown]
  - Hypersensitivity [Unknown]

NARRATIVE: CASE EVENT DATE: 20220615
